FAERS Safety Report 5911229-5 (Version None)
Quarter: 2008Q4

REPORT INFORMATION
  Report Type: 
  Country: None (occurrence: None)
  Receive Date: 20081007
  Receipt Date: 20080924
  Transmission Date: 20090506
  Serious: Yes (Hospitalization)
  Sender: FDA-Public Use
  Company Number: ES-BAUSCH-2008BL004148

PATIENT
  Age: 68 Year
  Sex: Female

DRUGS (12)
  1. ATROPINE [Suspect]
     Indication: DIAGNOSTIC PROCEDURE
     Route: 042
  2. DOBUTAMINE HCL [Suspect]
     Indication: DIAGNOSTIC PROCEDURE
     Route: 042
  3. DOBUTAMINE HCL [Suspect]
     Route: 042
  4. DOBUTAMINE HCL [Suspect]
     Route: 042
  5. DOBUTAMINE HCL [Suspect]
     Route: 042
  6. DOBUTAMINE HCL [Suspect]
  7. DOBUTAMINE HCL [Suspect]
  8. BISOPROLOL [Concomitant]
  9. HYDROCHLOROTHIAZIDE [Concomitant]
  10. ATORVASTATIN [Concomitant]
  11. RANITIDINE [Concomitant]
  12. IRBESARTAN [Concomitant]

REACTIONS (2)
  - ANTEROGRADE AMNESIA [None]
  - DISORIENTATION [None]
